APPROVED DRUG PRODUCT: SOMA
Active Ingredient: CARISOPRODOL
Strength: 250MG
Dosage Form/Route: CAPSULE;ORAL
Application: N011792 | Product #003
Applicant: MYLAN SPECIALTY LP
Approved: Approved Prior to Jan 1, 1982 | RLD: Yes | RS: No | Type: DISCN